FAERS Safety Report 7512950-8 (Version None)
Quarter: 2011Q2

REPORT INFORMATION
  Report Type: 
  Country: None (occurrence: None)
  Receive Date: 20110531
  Receipt Date: 20101201
  Transmission Date: 20111010
  Serious: No
  Sender: FDA-Public Use
  Company Number: US-NOVEN-ALL1-2010-06286

PATIENT
  Sex: Male
  Weight: 44.444 kg

DRUGS (4)
  1. DAYTRANA [Suspect]
     Dosage: UNK MG, 1X/DAY:QD (ONE 20 MG PATCH AND 1/2 OF A 20 MG PATCH)
     Route: 062
     Dates: start: 20100901, end: 20101001
  2. DAYTRANA [Suspect]
     Dosage: 30 MG, 1X/DAY:QD
     Route: 062
     Dates: start: 20101001
  3. RISPERDAL [Concomitant]
     Dosage: UNK MG, 1X/DAY:QD
     Route: 048
     Dates: start: 19990101
  4. DAYTRANA [Suspect]
     Dosage: 20 MG, 1X/DAY:QD
     Route: 062
     Dates: start: 20100801, end: 20100901

REACTIONS (4)
  - DRUG PRESCRIBING ERROR [None]
  - PRODUCT QUALITY ISSUE [None]
  - WRONG TECHNIQUE IN DRUG USAGE PROCESS [None]
  - DRUG EFFECT DELAYED [None]
